FAERS Safety Report 9797808 (Version 2)
Quarter: 2014Q1

REPORT INFORMATION
  Report Type: Spontaneous
  Country: BE (occurrence: BE)
  Receive Date: 20140106
  Receipt Date: 20140106
  Transmission Date: 20141002
  Serious: Yes (Hospitalization)
  Sender: FDA-Public Use
  Company Number: BE-JNJFOC-20131112868

PATIENT
  Age: 21 Year
  Sex: Female
  Weight: 73 kg

DRUGS (2)
  1. DAKTARIN [Suspect]
     Route: 061
  2. DAKTARIN [Suspect]
     Indication: PRODUCT USED FOR UNKNOWN INDICATION
     Route: 061
     Dates: start: 201308, end: 20131007

REACTIONS (2)
  - Hypersensitivity [Recovered/Resolved]
  - Eczema [Recovered/Resolved]
